FAERS Safety Report 5474618-1 (Version None)
Quarter: 2007Q3

REPORT INFORMATION
  Report Type: 
  Country: None (occurrence: None)
  Receive Date: 20070831
  Receipt Date: 20070413
  Transmission Date: 20080115
  Serious: No
  Sender: FDA-Public Use
  Company Number: 238723

PATIENT
  Age: 76 Year
  Sex: Female

DRUGS (3)
  1. LUCENTIS [Suspect]
     Indication: MACULAR DEGENERATION
     Dosage: 1/MONTH, INTRAVITREAL
     Dates: start: 20070314
  2. PRAVACHOL [Concomitant]
  3. ACTONEL [Concomitant]

REACTIONS (1)
  - EYE PAIN [None]
